FAERS Safety Report 7155176-2 (Version None)
Quarter: 2010Q4

REPORT INFORMATION
  Report Type: 
  Country: None (occurrence: None)
  Receive Date: 20101214
  Receipt Date: 20101020
  Transmission Date: 20110411
  Serious: No
  Sender: FDA-Public Use
  Company Number: US-AMGEN-KDL268854

PATIENT

DRUGS (3)
  1. ENBREL [Suspect]
     Indication: PSORIATIC ARTHROPATHY
     Dosage: 50 MG, QWK
     Route: 058
     Dates: start: 20080128
  2. ENBREL [Suspect]
     Dates: start: 20080128
  3. METHOTREXATE [Concomitant]
     Dosage: 2.5 MG, QD
     Route: 048
     Dates: start: 20071101

REACTIONS (5)
  - ABNORMAL SENSATION IN EYE [None]
  - HEADACHE [None]
  - INJECTION SITE ERYTHEMA [None]
  - INJECTION SITE PRURITUS [None]
  - INJECTION SITE SWELLING [None]
